FAERS Safety Report 9932240 (Version 1)
Quarter: 2014Q1

REPORT INFORMATION
  Report Type: Spontaneous
  Country: US (occurrence: None)
  Receive Date: 20140227
  Receipt Date: 20140227
  Transmission Date: 20141002
  Serious: Yes (Hospitalization)
  Sender: FDA-Public Use
  Company Number: None

PATIENT
  Age: 94 Year
  Sex: Male

DRUGS (9)
  1. PHENYTOINE [Suspect]
     Indication: CONVULSION
     Route: 048
  2. DOCUSATE [Concomitant]
  3. IPRATROPIUM-ALBUTEROL SOLUTION [Concomitant]
  4. FAMOTIDINE [Concomitant]
  5. FERROUS SULFATE [Concomitant]
  6. LEVETIRACETAM [Concomitant]
  7. LOSARTAN [Concomitant]
  8. SIMVASTATIN [Concomitant]
  9. THERAPEUTIC MULTIVITAMIN [Concomitant]

REACTIONS (8)
  - Mental status changes [None]
  - Toxicity to various agents [None]
  - Confusional state [None]
  - Aggression [None]
  - Hypophagia [None]
  - Urine output decreased [None]
  - Blood albumin decreased [None]
  - Renal impairment [None]
